FAERS Safety Report 7086450-6 (Version None)
Quarter: 2010Q4

REPORT INFORMATION
  Report Type: 
  Country: None (occurrence: None)
  Receive Date: 20101105
  Receipt Date: 20101028
  Transmission Date: 20110411
  Serious: Yes (Death)
  Sender: FDA-Public Use
  Company Number: GXKR2010JP10518

PATIENT
  Age: 40 Year
  Sex: Male

DRUGS (3)
  1. CISPLATIN [Suspect]
     Indication: OESOPHAGEAL CARCINOMA
     Dosage: 10 MG/BODY ON DAYS 1- 5 FOR 24 HOURS
     Route: 042
  2. FLUOROURACIL [Suspect]
     Indication: OESOPHAGEAL CARCINOMA
     Dosage: 500 MG/BODY ON DAYS 1-5 FOR 24 HOURS
     Route: 042
  3. RADIOTHERAPY [Concomitant]
     Dosage: 2 GY, BID

REACTIONS (15)
  - ABDOMINAL PAIN UPPER [None]
  - CHEST PAIN [None]
  - COAGULOPATHY [None]
  - CONVULSION [None]
  - DELIRIUM [None]
  - DYSPNOEA [None]
  - ENDOTRACHEAL INTUBATION [None]
  - HAEMATEMESIS [None]
  - MECHANICAL VENTILATION [None]
  - METABOLIC ACIDOSIS [None]
  - MULTI-ORGAN FAILURE [None]
  - PNEUMATOSIS INTESTINALIS [None]
  - PORTAL VENOUS GAS [None]
  - RESTLESSNESS [None]
  - SHOCK [None]
